FAERS Safety Report 5850087-4 (Version None)
Quarter: 2008Q3

REPORT INFORMATION
  Report Type: 
  Country: None (occurrence: None)
  Receive Date: 20080819
  Receipt Date: 20080811
  Transmission Date: 20090109
  Serious: Yes (Other)
  Sender: FDA-Public Use
  Company Number: US-ASTRAZENECA-2008UW16383

PATIENT
  Age: 81 Year
  Sex: Female
  Weight: 78 kg

DRUGS (2)
  1. ARIMIDEX [Suspect]
     Indication: BREAST CANCER
     Route: 048
     Dates: start: 20040101
  2. ATENOLOL [Concomitant]
     Route: 048

REACTIONS (3)
  - FATIGUE [None]
  - OSTEOPOROSIS [None]
  - RHEUMATOID ARTHRITIS [None]
